FAERS Safety Report 7406818-5 (Version None)
Quarter: 2011Q2

REPORT INFORMATION
  Report Type: 
  Country: None (occurrence: None)
  Receive Date: 20110411
  Receipt Date: 20110405
  Transmission Date: 20111010
  Serious: Yes (Other)
  Sender: FDA-Public Use
  Company Number: US-PFIZER INC-2011029836

PATIENT
  Sex: Female
  Weight: 56.689 kg

DRUGS (8)
  1. LIPITOR [Suspect]
     Indication: BLOOD CHOLESTEROL INCREASED
     Dosage: 5 MG/DAILY, 10 MG ON SUNDAY
     Route: 048
     Dates: start: 20010316
  2. BETACAROTENE [Concomitant]
  3. FISH OIL [Concomitant]
  4. CALCIUM [Concomitant]
     Dosage: 1500 MG, 1X/DAY
  5. VITAMIN E [Concomitant]
  6. CO-Q-10 [Concomitant]
  7. VITAMIN C ^ELAN^ [Concomitant]
  8. ASPIRIN [Concomitant]

REACTIONS (2)
  - OSTEOPOROSIS [None]
  - BLOOD CHOLESTEROL ABNORMAL [None]
